FAERS Safety Report 10639823 (Version 1)
Quarter: 2014Q4

REPORT INFORMATION
  Report Type: Spontaneous
  Country: DE (occurrence: DE)
  Receive Date: 20141209
  Receipt Date: 20141209
  Transmission Date: 20150529
  Serious: Yes (Hospitalization, Other)
  Sender: FDA-Public Use
  Company Number: DE-AUROBINDO-AUR-APL-2014-12846

PATIENT
  Age: 39 Year
  Sex: Female

DRUGS (12)
  1. PIPERACILLIN AND TAZOBACTAM [Suspect]
     Active Substance: PIPERACILLIN SODIUM\TAZOBACTAM SODIUM
     Indication: ABDOMINAL DISTENSION
  2. MOXIFLOXACIN [Suspect]
     Active Substance: MOXIFLOXACIN
     Indication: LEGIONELLA INFECTION
     Dosage: UNK
     Route: 065
  3. PROPOFOL. [Suspect]
     Active Substance: PROPOFOL
     Indication: GENERAL ANAESTHESIA
     Dosage: UNK
     Route: 065
  4. PIPERACILLIN AND TAZOBACTAM [Suspect]
     Active Substance: PIPERACILLIN SODIUM\TAZOBACTAM SODIUM
     Indication: PERITONITIS
     Dosage: UNK
     Route: 065
  5. PIPERACILLIN AND TAZOBACTAM [Suspect]
     Active Substance: PIPERACILLIN SODIUM\TAZOBACTAM SODIUM
     Indication: ABDOMINAL RIGIDITY
  6. RIFAMPICIN [Suspect]
     Active Substance: RIFAMPIN
     Indication: LEGIONELLA INFECTION
     Dosage: UNK
     Route: 065
  7. AMPICILLIN AND SULBACTAM [Suspect]
     Active Substance: AMPICILLIN SODIUM\SULBACTAM SODIUM
     Indication: PROPHYLAXIS
     Route: 040
  8. CEFTAZIDIME. [Suspect]
     Active Substance: CEFTAZIDIME
     Indication: PERITONITIS
     Dosage: UNK
     Route: 065
  9. IMIPENEM [Suspect]
     Active Substance: IMIPENEM
     Indication: ENTEROCOCCAL INFECTION
     Dosage: UNK
     Route: 065
  10. MIDAZOLAM [Suspect]
     Active Substance: MIDAZOLAM\MIDAZOLAM HYDROCHLORIDE
     Indication: GENERAL ANAESTHESIA
     Dosage: UNK
     Route: 065
  11. CLARITHROMYCIN. [Suspect]
     Active Substance: CLARITHROMYCIN
     Indication: PERITONITIS
     Dosage: UNK
     Route: 065
  12. PIPERACILLIN AND TAZOBACTAM [Suspect]
     Active Substance: PIPERACILLIN SODIUM\TAZOBACTAM SODIUM
     Indication: ABDOMINAL TENDERNESS

REACTIONS (23)
  - Ileus paralytic [Recovered/Resolved]
  - Breath sounds abnormal [Recovered/Resolved]
  - Abdominal distension [Recovered/Resolved]
  - Abdominal rigidity [Recovered/Resolved]
  - Rectal perforation [Recovered/Resolved]
  - Escherichia infection [Recovered/Resolved]
  - Condition aggravated [Recovered/Resolved]
  - Dyspnoea [Recovered/Resolved]
  - Respiratory fremitus [Recovered/Resolved]
  - Vomiting [Recovered/Resolved]
  - Abdominal tenderness [Recovered/Resolved]
  - Leukocytosis [Recovered/Resolved]
  - Abdominal pain upper [Recovered/Resolved]
  - Legionella test positive [Recovered/Resolved]
  - Respiratory distress [Recovered/Resolved]
  - Pneumothorax [Recovered/Resolved]
  - Peritonitis [Recovered/Resolved]
  - Pyrexia [Recovered/Resolved]
  - Hypoxia [Recovered/Resolved]
  - Lung disorder [Recovered/Resolved]
  - Eosinophilic pneumonia acute [Recovered/Resolved]
  - Diarrhoea [Recovered/Resolved]
  - Enterococcus test positive [Recovered/Resolved]
